FAERS Safety Report 20016550 (Version 1)
Quarter: 2021Q4

REPORT INFORMATION
  Report Type: Spontaneous
  Country: US (occurrence: None)
  Receive Date: 20211104
  Receipt Date: 20211104
  Transmission Date: 20220303
  Serious: Yes (Death)
  Sender: FDA-Public Use
  Company Number: None

PATIENT
  Age: 51 Year
  Sex: Male

DRUGS (1)
  1. POMALYST [Suspect]
     Active Substance: POMALIDOMIDE
     Indication: Lymphoma
     Dosage: FREQUENCY : DAILY;?
     Route: 048
     Dates: start: 20210910, end: 20211011

REACTIONS (5)
  - Chills [None]
  - Hypotension [None]
  - Heart rate increased [None]
  - Seizure [None]
  - Metastases to central nervous system [None]

NARRATIVE: CASE EVENT DATE: 20211030
